FAERS Safety Report 7890246-2 (Version None)
Quarter: 2011Q4

REPORT INFORMATION
  Report Type: 
  Country: None (occurrence: None)
  Receive Date: 20111103
  Receipt Date: 20110808
  Transmission Date: 20120403
  Serious: No
  Sender: FDA-Public Use
  Company Number: US-AMGEN-USASP2011040030

PATIENT
  Age: 32 Year
  Sex: Male

DRUGS (1)
  1. ENBREL [Suspect]
     Indication: RHEUMATOID ARTHRITIS
     Dosage: 50 MG, QWK
     Dates: start: 20110729

REACTIONS (8)
  - OROPHARYNGEAL PAIN [None]
  - NAUSEA [None]
  - RHINORRHOEA [None]
  - DIARRHOEA [None]
  - INJECTION SITE PAIN [None]
  - MYALGIA [None]
  - PRODUCTIVE COUGH [None]
  - THROAT IRRITATION [None]
